FAERS Safety Report 24443592 (Version 2)
Quarter: 2024Q4

REPORT INFORMATION
  Report Type: Report from Study
  Country: CA (occurrence: CA)
  Receive Date: 20241016
  Receipt Date: 20241017
  Transmission Date: 20250114
  Serious: No
  Sender: ROCHE
  Company Number: CA-ROCHE-2267346

PATIENT
  Age: 59 Year
  Sex: Female

DRUGS (21)
  1. RITUXAN [Suspect]
     Active Substance: RITUXIMAB
     Indication: Rheumatoid arthritis
     Dosage: FREQUENCY TEXT:DAY 1 AND 15
     Route: 042
     Dates: start: 20170504
  2. RITUXAN [Suspect]
     Active Substance: RITUXIMAB
     Dosage: FIRST PIR RECEIVED? FREQUENCY TEXT:DAY 1, 15
     Route: 042
     Dates: start: 20180912, end: 20200818
  3. RITUXAN [Suspect]
     Active Substance: RITUXIMAB
     Route: 042
     Dates: start: 20170504
  4. RITUXAN [Suspect]
     Active Substance: RITUXIMAB
     Dosage: DAY 1 AND DAY 16
     Route: 042
  5. RITUXAN [Suspect]
     Active Substance: RITUXIMAB
     Dosage: 1 EVERY 2 WEEKS
     Route: 042
     Dates: start: 20220210
  6. RITUXAN [Suspect]
     Active Substance: RITUXIMAB
     Route: 042
  7. RITUXAN [Suspect]
     Active Substance: RITUXIMAB
     Route: 042
  8. RITUXAN [Suspect]
     Active Substance: RITUXIMAB
     Route: 042
  9. RITUXAN [Suspect]
     Active Substance: RITUXIMAB
     Route: 042
  10. TYLENOL [Concomitant]
     Active Substance: ACETAMINOPHEN
     Indication: Premedication
     Dosage: FIRST PIR RECEIVED
     Route: 048
     Dates: start: 20180912
  11. BENADRYL [Concomitant]
     Active Substance: DIPHENHYDRAMINE HYDROCHLORIDE
     Indication: Premedication
     Dosage: FIRST PIR RECEIVED
     Route: 048
     Dates: start: 20180912
  12. PREDNISONE [Concomitant]
     Active Substance: PREDNISONE
     Indication: Premedication
     Dosage: FIRST PIR RECEIVED
     Route: 048
     Dates: start: 20180912
  13. OMEGA 3 [Concomitant]
     Active Substance: CAPSAICIN
  14. LORAZEPAM [Concomitant]
     Active Substance: LORAZEPAM
  15. BACLOFEN [Concomitant]
     Active Substance: BACLOFEN
  16. GABAPENTIN [Concomitant]
     Active Substance: GABAPENTIN
  17. LYRICA [Concomitant]
     Active Substance: PREGABALIN
  18. CALCIUM [Concomitant]
     Active Substance: CALCIUM
  19. SOLU-MEDROL [Concomitant]
     Active Substance: METHYLPREDNISOLONE SODIUM SUCCINATE
     Indication: Premedication
     Route: 048
  20. ZINC [Concomitant]
     Active Substance: ZINC
  21. MAGNESIUM [Concomitant]
     Active Substance: MAGNESIUM

REACTIONS (3)
  - Oxygen saturation decreased [Unknown]
  - Blood pressure systolic increased [Unknown]
  - Blood pressure diastolic abnormal [Unknown]

NARRATIVE: CASE EVENT DATE: 20190212
